FAERS Safety Report 8529665-X (Version None)
Quarter: 2012Q3

REPORT INFORMATION
  Report Type: 
  Country: None (occurrence: None)
  Receive Date: 20120723
  Receipt Date: 20120710
  Transmission Date: 20120928
  Serious: Yes (Other)
  Sender: FDA-Public Use
  Company Number: JP-VERTEX PHARMACEUTICALS INC.-AE-2012-010402

PATIENT
  Age: 48 Year
  Sex: Male

DRUGS (11)
  1. REBETOL [Concomitant]
     Route: 048
     Dates: start: 20120501, end: 20120507
  2. XYZAL [Concomitant]
     Route: 048
     Dates: start: 20120605, end: 20120612
  3. PEG-INTRON [Concomitant]
     Indication: HEPATITIS C
     Route: 058
     Dates: start: 20120409
  4. REBETOL [Concomitant]
     Route: 048
     Dates: start: 20120508
  5. TELAVIC (TELAPREVIR) [Suspect]
     Indication: HEPATITIS C
     Route: 048
     Dates: start: 20120409, end: 20120619
  6. REBETOL [Concomitant]
     Indication: HEPATITIS C
     Route: 048
     Dates: start: 20120409, end: 20120430
  7. RABEPRAZOLE SODIUM [Concomitant]
     Route: 048
  8. REBETOL [Concomitant]
     Route: 048
     Dates: start: 20120626
  9. MUCOSTA [Concomitant]
     Route: 048
  10. ANTEBATE [Concomitant]
     Route: 051
     Dates: start: 20120605
  11. CELESTAMINE TAB [Concomitant]
     Route: 048
     Dates: start: 20120612

REACTIONS (1)
  - RASH GENERALISED [None]
